FAERS Safety Report 7792290-2 (Version None)
Quarter: 2011Q3

REPORT INFORMATION
  Report Type: 
  Country: None (occurrence: None)
  Receive Date: 20110930
  Receipt Date: 20110930
  Transmission Date: 20111222
  Serious: No
  Sender: FDA-Public Use
  Company Number: None

PATIENT
  Sex: Male
  Weight: 68.4932 kg

DRUGS (2)
  1. PRADAXA [Suspect]
     Indication: VISION BLURRED
     Dosage: 75 MG 2X DAILY
     Dates: start: 20110630
  2. PRADAXA [Suspect]
     Indication: VISION BLURRED
     Dosage: 75 MG 2X DAILY
     Dates: start: 20110915

REACTIONS (1)
  - VISUAL IMPAIRMENT [None]
